FAERS Safety Report 8911134 (Version 1)
Quarter: 2012Q4

REPORT INFORMATION
  Report Type: Spontaneous
  Country: ZA (occurrence: None)
  Receive Date: 20121113
  Receipt Date: 20121113
  Transmission Date: 20130627
  Serious: Yes (Hospitalization)
  Sender: FDA-Public Use
  Company Number: B0842972A

PATIENT
  Age: 12 Year
  Sex: Male

DRUGS (7)
  1. LAMIVUDINE [Suspect]
     Indication: ANTIVIRAL TREATMENT
  2. ABACAVIR SULFATE [Suspect]
     Indication: ANTIVIRAL TREATMENT
  3. EFAVIRENZ [Suspect]
     Indication: ANTIVIRAL TREATMENT
  4. AMIKACIN [Suspect]
     Indication: TUBERCULOSIS
  5. OFLOXACIN [Suspect]
     Indication: TUBERCULOSIS
  6. TERIZIDONE [Suspect]
     Indication: ANTIVIRAL TREATMENT
  7. THALIDOMIDE [Suspect]
     Indication: PRODUCT USED FOR UNKNOWN INDICATION

REACTIONS (10)
  - Immune reconstitution inflammatory syndrome [None]
  - Headache [None]
  - Somnolence [None]
  - Intracranial pressure increased [None]
  - Papilloedema [None]
  - Intention tremor [None]
  - Cerebellar syndrome [None]
  - Computerised tomogram head abnormal [None]
  - Hydrocephalus [None]
  - Vomiting [None]
